FAERS Safety Report 19224217 (Version 2)
Quarter: 2024Q2

REPORT INFORMATION
  Report Type: Spontaneous
  Country: US (occurrence: None)
  Receive Date: 20210505
  Receipt Date: 20240418
  Transmission Date: 20240715
  Serious: No
  Sender: FDA-Public Use
  Company Number: US-ROCHE-2587850

PATIENT
  Sex: Male

DRUGS (7)
  1. ESBRIET [Suspect]
     Active Substance: PIRFENIDONE
     Indication: Idiopathic interstitial pneumonia
     Route: 048
  2. ESBRIET [Suspect]
     Active Substance: PIRFENIDONE
     Indication: Pulmonary hypertension
  3. ESBRIET [Suspect]
     Active Substance: PIRFENIDONE
     Indication: Lung disorder
  4. ESBRIET [Suspect]
     Active Substance: PIRFENIDONE
     Indication: Hypoxia
  5. METFORMIN HYDROCHLORIDE [Concomitant]
     Active Substance: METFORMIN HYDROCHLORIDE
  6. ASPIRIN [Concomitant]
     Active Substance: ASPIRIN
  7. LANTUS SOLOSTAR [Concomitant]
     Active Substance: INSULIN GLARGINE
     Dosage: 100 UNIT

REACTIONS (4)
  - Insomnia [Recovered/Resolved]
  - Back pain [Recovered/Resolved]
  - Abnormal dreams [Recovered/Resolved]
  - Off label use [Unknown]
